FAERS Safety Report 20345831 (Version 2)
Quarter: 2022Q1

REPORT INFORMATION
  Report Type: Spontaneous
  Country: CA (occurrence: CA)
  Receive Date: 20220118
  Receipt Date: 20220130
  Transmission Date: 20220423
  Serious: No
  Sender: FDA-Public Use
  Company Number: CA-APOTEX-2022AP001967

PATIENT
  Sex: Male

DRUGS (5)
  1. FAMCICLOVIR [Suspect]
     Active Substance: FAMCICLOVIR
     Indication: Herpes zoster
     Dosage: 500 MILLIGRAM, TID (PRESCRIBED FOR 7 DAYS)
     Route: 065
  2. FAMCICLOVIR [Suspect]
     Active Substance: FAMCICLOVIR
     Dosage: 250 MILLIGRAM, (ON THE DAY OF DIALYSIS ONLY)
     Route: 065
     Dates: start: 20220105
  3. METOPROLOL [Concomitant]
     Active Substance: METOPROLOL
     Indication: Hypertension
     Dosage: 100 MILLIGRAM, BID
     Route: 065
  4. AVAPRO [Concomitant]
     Active Substance: IRBESARTAN
     Indication: Hypertension
     Dosage: 150 MILLIGRAM, BID
     Route: 065
  5. FUROSEMIDE [Concomitant]
     Active Substance: FUROSEMIDE
     Indication: Diuretic therapy
     Dosage: 80 MILLIGRAM
     Route: 065

REACTIONS (2)
  - Chest pain [Recovered/Resolved]
  - Hyperhidrosis [Recovered/Resolved]
